FAERS Safety Report 6041742-4 (Version None)
Quarter: 2009Q1

REPORT INFORMATION
  Report Type: 
  Country: None (occurrence: None)
  Receive Date: 20090116
  Receipt Date: 20090105
  Transmission Date: 20090719
  Serious: Yes (Hospitalization, Other)
  Sender: FDA-Public Use
  Company Number: AU-PFIZER INC-2008157043

PATIENT

DRUGS (14)
  1. METRONIDAZOLE AND METRONIDAZOLE BENZOATE AND METRONIDAZOLE HYDROCHLORI [Suspect]
  2. ONDANSETRON HCL [Suspect]
  3. OMEPRAZOLE [Suspect]
  4. PREDNISOLONE AND PREDNISOLONE STEAGLATE [Suspect]
  5. TRIMETHOPRIM + SULFAMETHOXAZOLE [Suspect]
  6. CYCLOSPORINE [Suspect]
  7. FRUSEMIDE [Suspect]
  8. ITRACONAZOLE [Suspect]
  9. MELPHALAN [Suspect]
     Route: 042
  10. GALENIC /CLAVULANIC ACID/TICARCILLIN/ [Concomitant]
  11. NIFEDIPINE [Concomitant]
  12. METOCLOPRAMIDE [Concomitant]
  13. GENTAMICIN [Concomitant]
  14. CEPHALOTHIN [Concomitant]

REACTIONS (4)
  - ANAEMIA [None]
  - BLOOD AMYLASE INCREASED [None]
  - OEDEMA [None]
  - PANCREATITIS [None]
